FAERS Safety Report 9632024 (Version 2)
Quarter: 2013Q4

REPORT INFORMATION
  Report Type: Report from Study
  Country: US (occurrence: US)
  Receive Date: 20131018
  Receipt Date: 20131120
  Transmission Date: 20140711
  Serious: Yes (Other)
  Sender: FDA-Public Use
  Company Number: US-BAXTER-2013BAX040335

PATIENT
  Age: 37 Year
  Sex: Female
  Weight: 65 kg

DRUGS (8)
  1. GAMMAGARD LIQUID [Suspect]
     Indication: IMMUNODEFICIENCY
     Route: 042
     Dates: start: 2010
  2. GAMMAGARD LIQUID [Suspect]
     Route: 042
     Dates: start: 20131031
  3. ZYRTEC [Concomitant]
     Indication: HYPERSENSITIVITY
     Route: 048
  4. SINGULAIR [Concomitant]
     Indication: HYPERSENSITIVITY
     Route: 048
  5. ATENOLOL [Concomitant]
     Indication: SUPRAVENTRICULAR TACHYCARDIA
     Route: 048
  6. EFFEXOR [Concomitant]
     Indication: PRODUCT USED FOR UNKNOWN INDICATION
     Route: 048
  7. FLONASE [Concomitant]
     Indication: PRODUCT USED FOR UNKNOWN INDICATION
     Route: 045
  8. ZANTAC [Concomitant]
     Indication: PRODUCT USED FOR UNKNOWN INDICATION
     Route: 048

REACTIONS (4)
  - Bronchitis [Not Recovered/Not Resolved]
  - Sinusitis [Not Recovered/Not Resolved]
  - Blood immunoglobulin G decreased [Unknown]
  - Pyrexia [Recovered/Resolved]
